FAERS Safety Report 9002071 (Version 3)
Quarter: 2013Q1

REPORT INFORMATION
  Report Type: Spontaneous
  Country: US (occurrence: US)
  Receive Date: 20130107
  Receipt Date: 20130123
  Transmission Date: 20140127
  Serious: Yes (Hospitalization, Other)
  Sender: FDA-Public Use
  Company Number: US-AMGEN-USASP2013000118

PATIENT
  Sex: Female
  Weight: 53 kg

DRUGS (31)
  1. EPOGEN [Suspect]
     Indication: NEPHROGENIC ANAEMIA
     Dosage: 5000 UNIT, 2 TIMES/WK
     Route: 058
     Dates: start: 20110621, end: 20121212
  2. HEPARIN [Concomitant]
     Dosage: 7000 UNIT, 3 TIMES/WK
     Route: 042
     Dates: start: 20110607
  3. HYDRALAZINE [Concomitant]
     Indication: HYPERTENSION
     Dosage: 75 MG, TID
     Route: 048
     Dates: start: 20110911
  4. ALBUTEROL                          /00139501/ [Concomitant]
     Dosage: 3 ML, QD Q 6 HOURS
     Dates: start: 20110910
  5. AMBIEN [Concomitant]
     Dosage: 10 MG, QHS
     Dates: start: 20111015
  6. COUMADIN                           /00014802/ [Concomitant]
     Dosage: 7.5 MG, QD INR
     Dates: end: 20111023
  7. COUMADIN                           /00014802/ [Concomitant]
     Dosage: 10 MG, QD INR
     Dates: start: 20111024
  8. ASPIRIN [Concomitant]
     Dosage: 81 MG, QD
     Dates: start: 20110322, end: 20110330
  9. ASPIRIN [Concomitant]
     Dosage: 81 MG, QD
     Dates: start: 20110611
  10. BENADRYL                           /00000402/ [Concomitant]
     Dosage: 25 MG-50 MG, PRN
     Dates: start: 20110122
  11. CALCIUM ACETATE [Concomitant]
     Dosage: 667 MG, AC
     Dates: start: 20110208, end: 20110219
  12. CALCIUM ACETATE [Concomitant]
     Dosage: 1334 MG, AC
     Dates: start: 20110423, end: 20110610
  13. CALCIUM ACETATE [Concomitant]
     Dosage: 2001 MG, AC WITH MEALS
     Dates: start: 20110611, end: 20120924
  14. CALCIUM ACETATE [Concomitant]
     Dosage: 669 MG, AC WITH MEALS
     Dates: start: 20120924
  15. CLONIDINE [Concomitant]
     Dosage: 0.1 MG, PRN HOURLY
     Dates: start: 20110305
  16. CLONIDINE [Concomitant]
     Dosage: 0.3 MG, TID
     Dates: start: 20110611, end: 20110618
  17. CLONIDINE [Concomitant]
     Dosage: 0.3 MG, QID INCLUDES PRE HD
     Dates: start: 20110619, end: 20111004
  18. CLONIDINE [Concomitant]
     Dosage: 0.3 MG, TID INCLUDES PRE HD
     Dates: start: 20111005
  19. COLACE [Concomitant]
     Dosage: 100 MG, BID
     Dates: start: 20110611
  20. ATIVAN [Concomitant]
     Dosage: 1.5 MG, UNK, BEFORE DIALYSIS
  21. ATIVAN [Concomitant]
     Dosage: 0.5 MG, BID
     Dates: start: 20110322, end: 20110610
  22. ATIVAN [Concomitant]
     Dosage: 1.5 MG, PRN, Q6H
     Dates: start: 20110611
  23. ATIVAN [Concomitant]
     Dosage: 1.5 MG,  ONCE
     Dates: start: 20110630, end: 20110701
  24. ATIVAN [Concomitant]
     Dosage: 1 MG, ONCE
     Dates: start: 20110716, end: 20110717
  25. ATIVAN [Concomitant]
     Dosage: 1 MG, ONCE
     Dates: start: 20120119, end: 20120120
  26. ATIVAN [Concomitant]
     Dosage: 1 MG, ONCE
     Dates: start: 20120131, end: 20120201
  27. ATIVAN [Concomitant]
     Dosage: 1 MG, TID PRN
     Dates: start: 20120305, end: 20120311
  28. ATIVAN [Concomitant]
     Dosage: 1 MG, TID PRN
     Dates: start: 20120307
  29. ATIVAN [Concomitant]
     Dosage: 1 MG, ONCE
     Dates: start: 20120524, end: 20120525
  30. ACETAMINOPHEN [Concomitant]
     Dosage: 650 MG, Q4H PRN
     Dates: start: 20110122
  31. CATHFLO ACTIVASE [Concomitant]
     Dosage: 2 MG, PRN
     Route: 048
     Dates: start: 20110122, end: 20121211

REACTIONS (6)
  - Fluid overload [Unknown]
  - Cardiac failure congestive [Unknown]
  - Therapeutic response decreased [Unknown]
  - Blood pressure increased [Unknown]
  - Haemoglobin decreased [Unknown]
  - Drug ineffective [Not Recovered/Not Resolved]
